FAERS Safety Report 11491610 (Version 4)
Quarter: 2015Q4

REPORT INFORMATION
  Report Type: Report from Study
  Country: US (occurrence: US)
  Receive Date: 20150910
  Receipt Date: 20151125
  Transmission Date: 20160304
  Serious: Yes (Hospitalization)
  Sender: FDA-Public Use
  Company Number: US-VERTEX PHARMACEUTICALS-2015-003655

PATIENT
  Age: 44 Year
  Sex: Female
  Weight: 58 kg

DRUGS (26)
  1. AQUADEKS [Concomitant]
     Dosage: 1 DF, QD
     Route: 048
     Dates: start: 20130516
  2. CREON [Concomitant]
     Active Substance: PANCRELIPASE AMYLASE\PANCRELIPASE LIPASE\PANCRELIPASE PROTEASE
     Dosage: 6 DF W/MEALS (3X), 3-4 DF W/SNACKS (1-2X)
     Route: 048
     Dates: start: 20111223
  3. NOVOLOG [Concomitant]
     Active Substance: INSULIN ASPART
     Dosage: 10 UT, QD
     Dates: start: 20150714
  4. FLOVENT [Concomitant]
     Active Substance: FLUTICASONE PROPIONATE
     Dosage: 220 MCG/ACT, 2 PUFFS QD
     Route: 055
  5. FLUTICASONE PROPIONATE. [Concomitant]
     Active Substance: FLUTICASONE PROPIONATE
     Dosage: 1-2 DF PER NOSTRIL, BID, PRN
     Route: 045
     Dates: start: 20141205
  6. HYDROCORTISONE VALERATE. [Concomitant]
     Active Substance: HYDROCORTISONE VALERATE
     Dosage: BID, PRN
     Route: 061
     Dates: start: 20150624
  7. LEVALBUTEROL HCL [Concomitant]
     Active Substance: LEVALBUTEROL HYDROCHLORIDE
     Dosage: 1 IU, QD, PRN
     Route: 055
     Dates: start: 20111223
  8. DEXTROSE. [Concomitant]
     Active Substance: DEXTROSE
     Dosage: 50 ML, PRN
     Route: 042
  9. BETHKIS [Concomitant]
     Active Substance: TOBRAMYCIN
     Dosage: 300MG / 4ML, BID. QOM
     Route: 055
     Dates: start: 20150611
  10. LOSARTAN POTASSIUM. [Concomitant]
     Active Substance: LOSARTAN POTASSIUM
     Dosage: 25 MG, QD
     Route: 048
     Dates: start: 20131011
  11. PULMOZYME [Concomitant]
     Active Substance: DORNASE ALFA
     Dosage: 1 MG/ML, QD
     Route: 055
     Dates: start: 20111223
  12. ALBUTEROL SULFATE. [Concomitant]
     Active Substance: ALBUTEROL SULFATE
     Dosage: 2.5 MG=3ML, EVERY 4 HOURS
     Route: 055
  13. VX-661/VX-770 [Suspect]
     Active Substance: INVESTIGATIONAL PRODUCT
     Indication: CYSTIC FIBROSIS
     Dosage: VX-661 100MG QD / VX-770 150MG BID
     Route: 048
     Dates: start: 20150515, end: 20150930
  14. ALLEGRA ALLERGY [Concomitant]
     Active Substance: FEXOFENADINE HYDROCHLORIDE
     Indication: HYPERSENSITIVITY
     Dosage: 180 MG, QD, PRN
     Route: 048
     Dates: start: 20150624
  15. LANTUS [Concomitant]
     Active Substance: INSULIN GLARGINE
     Dosage: 10 IU, QD
     Route: 058
     Dates: start: 20150714
  16. SODIUM CHLORIDE. [Concomitant]
     Active Substance: SODIUM CHLORIDE
     Dosage: 1 DF, QD
     Route: 055
     Dates: start: 20111223
  17. DEXTROSE. [Concomitant]
     Active Substance: DEXTROSE
     Dosage: 4X4 G, PRN
     Route: 048
  18. HEPARIN [Concomitant]
     Active Substance: HEPARIN SODIUM
     Dosage: 5000 UT, Q8H
     Route: 058
  19. SODIUM CHLORIDE. [Concomitant]
     Active Substance: SODIUM CHLORIDE
     Dosage: 2.5 ML, Q4H
     Route: 055
  20. VX-770/VX-661 [Suspect]
     Active Substance: INVESTIGATIONAL PRODUCT
     Indication: CYSTIC FIBROSIS
     Dosage: VX-661 100MG QD / VX-770 150MG BID
     Route: 048
     Dates: start: 20150515, end: 20150930
  21. LIPASE [Concomitant]
     Active Substance: LIPASE
     Dosage: TID
     Route: 048
  22. MOMETASONE [Concomitant]
     Active Substance: MOMETASONE
     Dosage: 2 PUFFS
     Route: 055
  23. NOVOLOG [Concomitant]
     Active Substance: INSULIN ASPART
     Dosage: 100 IU, QD
     Route: 058
     Dates: start: 20130530
  24. XOPENEX HFA [Concomitant]
     Active Substance: LEVALBUTEROL TARTRATE
     Dosage: 1 TO 2 PUFFS EVERY 4 TO 6 HOURS
     Route: 055
  25. DEXTROSE. [Concomitant]
     Active Substance: DEXTROSE
     Dosage: 25 ML, PRN
     Route: 042
  26. PYRITHIONE ZINC. [Concomitant]
     Active Substance: PYRITHIONE ZINC
     Route: 061

REACTIONS (1)
  - Migraine [Recovered/Resolved]

NARRATIVE: CASE EVENT DATE: 20150901
